FAERS Safety Report 14371846 (Version 1)
Quarter: 2018Q1

REPORT INFORMATION
  Report Type: Spontaneous
  Country: US (occurrence: US)
  Receive Date: 20180109
  Receipt Date: 20180109
  Transmission Date: 20180509
  Serious: Yes (Disabling)
  Sender: FDA-Public Use
  Company Number: None

PATIENT
  Age: 30 Year
  Sex: Female
  Weight: 69.75 kg

DRUGS (3)
  1. ADULT MULTIVITAMIN [Concomitant]
  2. SULFAMETHOXAZOLE [Suspect]
     Active Substance: SULFAMETHOXAZOLE
     Indication: LYMPHADENOPATHY
     Dosage: ?          QUANTITY:20 CAPSULE(S);?
     Route: 048
     Dates: start: 20180102, end: 20180109
  3. MIRENA [Concomitant]
     Active Substance: LEVONORGESTREL

REACTIONS (8)
  - Dry eye [None]
  - Back pain [None]
  - Influenza like illness [None]
  - Lymphadenopathy [None]
  - Tongue ulceration [None]
  - Mouth ulceration [None]
  - Myalgia [None]
  - Lymph node pain [None]

NARRATIVE: CASE EVENT DATE: 20180108
